FAERS Safety Report 23361853 (Version 2)
Quarter: 2024Q1

REPORT INFORMATION
  Report Type: Spontaneous
  Country: US (occurrence: US)
  Receive Date: 20240103
  Receipt Date: 20240109
  Transmission Date: 20240410
  Serious: No
  Sender: FDA-Public Use
  Company Number: US-PFIZER INC-PV202300209793

PATIENT
  Age: 58 Year
  Sex: Female
  Weight: 50.159 kg

DRUGS (7)
  1. IBRANCE [Suspect]
     Active Substance: PALBOCICLIB
     Indication: Breast cancer stage IV
     Dosage: CYCLE 1
     Route: 048
     Dates: start: 20230912
  2. IBRANCE [Suspect]
     Active Substance: PALBOCICLIB
     Dosage: CYCLE 2
     Dates: start: 20231004, end: 20231010
  3. IBRANCE [Suspect]
     Active Substance: PALBOCICLIB
     Dosage: CYCLE 3
     Dates: start: 20231025
  4. IBRANCE [Suspect]
     Active Substance: PALBOCICLIB
     Dosage: CYCLE 4
     Dates: start: 20231115
  5. IBRANCE [Suspect]
     Active Substance: PALBOCICLIB
     Dosage: CYCLE 5
     Dates: start: 20231206
  6. IBRANCE [Suspect]
     Active Substance: PALBOCICLIB
     Dosage: CYCLE 6
     Dates: end: 20231227
  7. LETROZOLE [Concomitant]
     Active Substance: LETROZOLE
     Dosage: UNK

REACTIONS (21)
  - Blood alkaline phosphatase increased [Unknown]
  - Alanine aminotransferase decreased [Unknown]
  - Aspartate aminotransferase decreased [Unknown]
  - Blood calcium decreased [Unknown]
  - Troponin decreased [Unknown]
  - Blood glucose increased [Unknown]
  - Blood bilirubin decreased [Unknown]
  - White blood cell count increased [Unknown]
  - Red blood cell count decreased [Unknown]
  - Haemoglobin decreased [Unknown]
  - Haematocrit decreased [Unknown]
  - Mean cell volume increased [Unknown]
  - Mean cell haemoglobin increased [Unknown]
  - Mean cell haemoglobin concentration decreased [Unknown]
  - Red cell distribution width increased [Unknown]
  - Lymphocyte count decreased [Unknown]
  - Monocyte count decreased [Unknown]
  - Neutrophil count increased [Unknown]
  - Immature granulocyte count increased [Unknown]
  - Immature granulocyte percentage increased [Unknown]
  - Off label use [Unknown]

NARRATIVE: CASE EVENT DATE: 20230912
